FAERS Safety Report 8770722 (Version 3)
Quarter: 2013Q3

REPORT INFORMATION
  Report Type: Spontaneous
  Country: CA (occurrence: CA)
  Receive Date: 20120907
  Receipt Date: 20130912
  Transmission Date: 20140515
  Serious: Yes (Hospitalization)
  Sender: FDA-Public Use
  Company Number: CA-ROCHE-GNE309708

PATIENT
  Age: 63 Year
  Sex: Female

DRUGS (3)
  1. XOLAIR [Suspect]
     Indication: ASTHMA
     Route: 058
     Dates: start: 20050802
  2. XOLAIR [Suspect]
     Dosage: 300 MG, Q2W
     Route: 058
     Dates: start: 20130211
  3. ASPIRIN [Concomitant]
     Indication: PRODUCT USED FOR UNKNOWN INDICATION
     Route: 065

REACTIONS (4)
  - Gastrointestinal disorder [Unknown]
  - Diarrhoea [Unknown]
  - Blood pressure increased [Unknown]
  - Urinary tract infection [Unknown]
